FAERS Safety Report 18616930 (Version 1)
Quarter: 2020Q4

REPORT INFORMATION
  Report Type: Spontaneous
  Country: NL (occurrence: NL)
  Receive Date: 20201215
  Receipt Date: 20201215
  Transmission Date: 20210114
  Serious: Yes (Other)
  Sender: FDA-Public Use
  Company Number: NL-AUROBINDO-AUR-APL-2020-060776

PATIENT
  Sex: Male

DRUGS (5)
  1. TADALAFIL  FILM COATED TABLETS [Suspect]
     Active Substance: TADALAFIL
     Indication: PRODUCT USED FOR UNKNOWN INDICATION
     Dosage: UNK UNK, ONCE A DAY (AS REQUIRED)
     Route: 065
     Dates: start: 20201117, end: 20201118
  2. ANTAGEL [Concomitant]
     Indication: PRODUCT USED FOR UNKNOWN INDICATION
     Dosage: UNK
     Route: 065
  3. PIPAMPERON [Concomitant]
     Active Substance: PIPAMPERONE HYDROCHLORIDE
     Indication: PRODUCT USED FOR UNKNOWN INDICATION
     Dosage: 20 MILLIGRAM
     Route: 065
  4. ABILIFY [Suspect]
     Active Substance: ARIPIPRAZOLE
     Indication: PSYCHOTIC DISORDER
     Dosage: 15 MILLIGRAM, ONCE A DAY
     Route: 048
     Dates: start: 199602, end: 201701
  5. ABILIFY [Suspect]
     Active Substance: ARIPIPRAZOLE
     Indication: BRAIN CONTUSION
     Dosage: 15 MILLIGRAM, ONCE A DAY
     Route: 048

REACTIONS (22)
  - Liver injury [Unknown]
  - Feeling drunk [Unknown]
  - Fatigue [Unknown]
  - Loss of consciousness [Unknown]
  - Glomerular filtration rate decreased [Unknown]
  - Renal injury [Unknown]
  - Extrasystoles [Unknown]
  - Headache [Unknown]
  - Erectile dysfunction [Unknown]
  - Hyperhidrosis [Unknown]
  - Back pain [Recovered/Resolved]
  - Withdrawal syndrome [Unknown]
  - Splenic injury [Unknown]
  - Hypotension [Unknown]
  - Renal impairment [Recovered/Resolved]
  - Fear of death [Unknown]
  - Gamma-glutamyltransferase [Unknown]
  - Pain [Unknown]
  - Back disorder [Unknown]
  - Gait inability [Unknown]
  - Delirium [Unknown]
  - Product use in unapproved indication [Unknown]

NARRATIVE: CASE EVENT DATE: 2016
